FAERS Safety Report 16283203 (Version 4)
Quarter: 2019Q3

REPORT INFORMATION
  Report Type: Report from Study
  Country: DE (occurrence: DE)
  Receive Date: 20190507
  Receipt Date: 20190821
  Transmission Date: 20191004
  Serious: Yes (Hospitalization, Other)
  Sender: FDA-Public Use
  Company Number: DE-BRISTOL-MYERS SQUIBB COMPANY-BMS-2019-043678

PATIENT
  Age: 45 Year
  Sex: Female
  Weight: 45 kg

DRUGS (3)
  1. IPILIMUMAB [Suspect]
     Active Substance: IPILIMUMAB
     Indication: SMALL CELL LUNG CANCER
     Dosage: 153 MILLIGRAM (3MG/KG), Q3WK
     Route: 042
     Dates: start: 20190411, end: 20190507
  2. CORTISON [Concomitant]
     Active Substance: CORTISONE ACETATE
     Indication: PRODUCT USED FOR UNKNOWN INDICATION
     Dosage: UNK
     Route: 065
     Dates: start: 20190426, end: 20190428
  3. NIVOLUMAB [Suspect]
     Active Substance: NIVOLUMAB
     Indication: SMALL CELL LUNG CANCER
     Dosage: 51 MILLIGRAM (1 MG/KG), Q3WK
     Route: 042
     Dates: start: 20190411, end: 20190507

REACTIONS (1)
  - Retinopathy [Recovered/Resolved with Sequelae]

NARRATIVE: CASE EVENT DATE: 20190426
